FAERS Safety Report 14315164 (Version 1)
Quarter: 2017Q4

REPORT INFORMATION
  Report Type: Spontaneous
  Country: GB (occurrence: GB)
  Receive Date: 20171221
  Receipt Date: 20171221
  Transmission Date: 20180321
  Serious: Yes (Death, Hospitalization)
  Sender: FDA-Public Use
  Company Number: GB-TEVA-2017-GB-833879

PATIENT
  Age: 87 Year
  Sex: Female
  Weight: 41 kg

DRUGS (7)
  1. WARFARIN SODIUM. [Suspect]
     Active Substance: WARFARIN SODIUM
     Indication: ATRIAL FIBRILLATION
     Dosage: VARIED WITH INTERNATIONAL NORMALISED RATIO.
     Route: 048
     Dates: end: 20171014
  2. NAFTIDROFURYL OXALATE [Concomitant]
     Active Substance: NAFRONYL OXALATE
  3. BISOPROLOL FUMARATE. [Concomitant]
     Active Substance: BISOPROLOL FUMARATE
  4. PARACETAMOL [Concomitant]
     Active Substance: ACETAMINOPHEN
  5. LETROZOLE. [Concomitant]
     Active Substance: LETROZOLE
  6. RANITIDINE. [Concomitant]
     Active Substance: RANITIDINE
  7. LACTULOSE. [Concomitant]
     Active Substance: LACTULOSE

REACTIONS (3)
  - Confusional state [Unknown]
  - Mobility decreased [Unknown]
  - Subdural haematoma [Fatal]

NARRATIVE: CASE EVENT DATE: 20171011
